FAERS Safety Report 25385008 (Version 1)
Quarter: 2025Q2

REPORT INFORMATION
  Report Type: Spontaneous
  Country: US (occurrence: US)
  Receive Date: 20250602
  Receipt Date: 20250602
  Transmission Date: 20250716
  Serious: Yes (Hospitalization)
  Sender: UCB
  Company Number: US-UCBSA-2025032097

PATIENT
  Sex: Male

DRUGS (1)
  1. BIMZELX [Suspect]
     Active Substance: BIMEKIZUMAB-BKZX
     Indication: Hidradenitis
     Dosage: 320 MILLIGRAM, EV 2 WEEKS(QOW) (FOR WEEKS 0-16 THEN EVERY 4 WEEKS AS DIRECTED)
     Route: 058
     Dates: start: 202504

REACTIONS (1)
  - Vaginoplasty [Unknown]

NARRATIVE: CASE EVENT DATE: 20250101
